FAERS Safety Report 9085065 (Version 1)
Quarter: 2013Q1

REPORT INFORMATION
  Report Type: Spontaneous
  Country: US (occurrence: US)
  Receive Date: 20130131
  Receipt Date: 20130131
  Transmission Date: 20140127
  Serious: No
  Sender: FDA-Public Use
  Company Number: US-009507513-1301USA013286

PATIENT
  Sex: Female
  Weight: 102.4 kg

DRUGS (1)
  1. IMPLANON [Suspect]
     Dosage: UNK
     Dates: start: 201001

REACTIONS (2)
  - Medical device complication [Unknown]
  - No adverse event [Unknown]
